FAERS Safety Report 4820330-9 (Version None)
Quarter: 2005Q4

REPORT INFORMATION
  Report Type: 
  Country: None (occurrence: None)
  Receive Date: 20051014
  Receipt Date: 20050905
  Transmission Date: 20060501
  Serious: No
  Sender: FDA-Public Use
  Company Number: 2005SP002640

PATIENT
  Age: 65 Year
  Sex: Female
  Weight: 48.5349 kg

DRUGS (2)
  1. LUNESTA [Suspect]
     Dosage: 3 MG;HS;ORAL, 2 MG;HS;ORAL
     Route: 048
     Dates: start: 20050801, end: 20050829
  2. LUNESTA [Suspect]
     Dosage: 3 MG;HS;ORAL, 2 MG;HS;ORAL
     Route: 048
     Dates: start: 20050830, end: 20050903

REACTIONS (2)
  - DIZZINESS [None]
  - LETHARGY [None]
